FAERS Safety Report 10196287 (Version 2)
Quarter: 2014Q2

REPORT INFORMATION
  Report Type: Spontaneous
  Country: IT (occurrence: IT)
  Receive Date: 20140527
  Receipt Date: 20140606
  Transmission Date: 20141212
  Serious: Yes (Disabling)
  Sender: FDA-Public Use
  Company Number: IT-ROCHE-1408613

PATIENT
  Age: 62 Year
  Sex: 0

DRUGS (3)
  1. AVASTIN [Suspect]
     Indication: COLON CANCER METASTATIC
     Route: 042
     Dates: start: 20131121, end: 20140331
  2. FLUOROURACILE TEVA [Suspect]
     Indication: COLON CANCER METASTATIC
     Route: 042
     Dates: start: 20131121, end: 20140331
  3. OXALIPLATINO TEVA [Suspect]
     Indication: COLON CANCER METASTATIC
     Route: 042
     Dates: start: 20131121, end: 20140331

REACTIONS (1)
  - Hypertransaminasaemia [Recovered/Resolved with Sequelae]
